FAERS Safety Report 9709597 (Version 2)
Quarter: 2014Q1

REPORT INFORMATION
  Report Type: Spontaneous
  Country: US (occurrence: US)
  Receive Date: 20131126
  Receipt Date: 20140306
  Transmission Date: 20141002
  Serious: No
  Sender: FDA-Public Use
  Company Number: US-BIOGENIDEC-2013BI112136

PATIENT
  Age: 67 Year
  Sex: Female

DRUGS (1)
  1. TYSABRI [Suspect]
     Indication: MULTIPLE SCLEROSIS
     Route: 042
     Dates: start: 20090916

REACTIONS (5)
  - Dementia Alzheimer^s type [Unknown]
  - Dementia [Unknown]
  - General symptom [Unknown]
  - Memory impairment [Unknown]
  - General physical health deterioration [Not Recovered/Not Resolved]
